FAERS Safety Report 8707485 (Version 2)
Quarter: 2013Q4

REPORT INFORMATION
  Report Type: Spontaneous
  Country: US (occurrence: US)
  Receive Date: 20120804
  Receipt Date: 20131101
  Transmission Date: 20140711
  Serious: No
  Sender: FDA-Public Use
  Company Number: US-009507513-1207USA011425

PATIENT
  Age: 42 Year
  Sex: Male

DRUGS (10)
  1. ZOCOR [Suspect]
     Route: 048
  2. PRILOSEC [Suspect]
     Route: 048
  3. BETASERON [Suspect]
  4. OXYBUTYNIN [Suspect]
  5. MELOXICAM [Suspect]
  6. IMITREX (SUMATRIPTAN) [Suspect]
  7. TESTIM [Suspect]
  8. TIZANIDINE HYDROCHLORIDE [Suspect]
  9. WELLBUTRIN XL [Suspect]
  10. BACLOFEN [Suspect]

REACTIONS (2)
  - Gastrooesophageal reflux disease [Unknown]
  - Dyspepsia [Unknown]
